FAERS Safety Report 15684038 (Version 1)
Quarter: 2018Q4

REPORT INFORMATION
  Report Type: Spontaneous
  Country: FI (occurrence: FI)
  Receive Date: 20181204
  Receipt Date: 20181204
  Transmission Date: 20190205
  Serious: Yes (Hospitalization)
  Sender: FDA-Public Use
  Company Number: FI-AXELLIA-002090

PATIENT
  Age: 37 Year
  Sex: Male

DRUGS (2)
  1. ZINACEF [Concomitant]
     Active Substance: CEFUROXIME SODIUM
  2. VANCOMYCIN [Suspect]
     Active Substance: VANCOMYCIN
     Indication: INTERVERTEBRAL DISCITIS
     Route: 042
     Dates: start: 20181018, end: 20181105

REACTIONS (2)
  - Lymphadenitis [Not Recovered/Not Resolved]
  - Pyrexia [Not Recovered/Not Resolved]

NARRATIVE: CASE EVENT DATE: 20181030
